FAERS Safety Report 6010252-2 (Version None)
Quarter: 2008Q4

REPORT INFORMATION
  Report Type: 
  Country: None (occurrence: None)
  Receive Date: 20081218
  Receipt Date: 20080229
  Transmission Date: 20090506
  Serious: No
  Sender: FDA-Public Use
  Company Number: A0712721A

PATIENT
  Age: 36 Year
  Sex: Female

DRUGS (2)
  1. FLONASE [Suspect]
     Dosage: 2SPR PER DAY
     Route: 045
     Dates: start: 20080226, end: 20080228
  2. ADVAIR DISKUS 500/50 [Concomitant]

REACTIONS (2)
  - AGEUSIA [None]
  - ANOSMIA [None]
